FAERS Safety Report 7931713-2 (Version None)
Quarter: 2011Q4

REPORT INFORMATION
  Report Type: 
  Country: None (occurrence: None)
  Receive Date: 20111121
  Receipt Date: 20111114
  Transmission Date: 20120403
  Serious: Yes (Hospitalization)
  Sender: FDA-Public Use
  Company Number: PHHY2011NL84019

PATIENT
  Sex: Male

DRUGS (11)
  1. ZOMETA [Suspect]
     Dosage: 4 MG/5 ML, 1X PER 21 DAYS
     Dates: start: 20110922
  2. DICLOFENAC SODIUM [Concomitant]
  3. MORPHINE [Concomitant]
  4. OXYCODONE HCL [Concomitant]
     Dosage: 20 MG, 3DD
  5. BICALUTAMIDE [Concomitant]
  6. DURAGESIC-100 [Concomitant]
     Dosage: 50 UG/3 DAYS
  7. ZOMETA [Suspect]
     Indication: PROSTATE CANCER
     Dosage: 4 MG/5 ML, 1X PER 21 DAYS
     Dates: start: 20110901
  8. OMEPRAZOLE [Concomitant]
     Dosage: 20 MG, 1DD
  9. AVODART [Concomitant]
  10. CYPROTERONE ACETATE [Concomitant]
  11. LEUPROLIDE ACETATE [Concomitant]

REACTIONS (5)
  - PAIN [None]
  - ASTHENIA [None]
  - PARAESTHESIA [None]
  - MONOPLEGIA [None]
  - MOBILITY DECREASED [None]
